FAERS Safety Report 8588899-9 (Version None)
Quarter: 2012Q3

REPORT INFORMATION
  Report Type: 
  Country: None (occurrence: None)
  Receive Date: 20120813
  Receipt Date: 20120806
  Transmission Date: 20120928
  Serious: Yes (Other)
  Sender: FDA-Public Use
  Company Number: FR-PFIZER INC-2012190419

PATIENT
  Age: 64 Year
  Sex: Male

DRUGS (2)
  1. FLUCONAZOLE [Suspect]
     Indication: CANDIDIASIS
     Dosage: 2 SPOONS DAILY FOR 2 WEEKS
  2. FLUCONAZOLE [Suspect]
     Dosage: 1 SPOON DAILY FOR 1 WEEK

REACTIONS (2)
  - PANCREATIC NEOPLASM [None]
  - FOCAL NODULAR HYPERPLASIA [None]
